FAERS Safety Report 7088549-7 (Version None)
Quarter: 2010Q4

REPORT INFORMATION
  Report Type: 
  Country: None (occurrence: None)
  Receive Date: 20101108
  Receipt Date: 20101103
  Transmission Date: 20110411
  Serious: Yes (Hospitalization)
  Sender: FDA-Public Use
  Company Number: AR-ROCHE-738851

PATIENT
  Age: 28 Year
  Sex: Female

DRUGS (1)
  1. ACTEMRA [Suspect]
     Dosage: FREQUENCY: UNKNOWN
     Route: 042

REACTIONS (1)
  - PANCREATITIS [None]
